FAERS Safety Report 16983493 (Version 1)
Quarter: 2019Q4

REPORT INFORMATION
  Report Type: Spontaneous
  Country: JP (occurrence: JP)
  Receive Date: 20191101
  Receipt Date: 20191101
  Transmission Date: 20200122
  Serious: Yes (Other)
  Sender: FDA-Public Use
  Company Number: PHJP2019JP012209

PATIENT
  Age: 68 Year
  Sex: Female

DRUGS (1)
  1. STALEVO [Suspect]
     Active Substance: CARBIDOPA\ENTACAPONE\LEVODOPA
     Indication: PARKINSON^S DISEASE
     Dosage: 100 MG
     Route: 048

REACTIONS (4)
  - Dysphagia [Recovered/Resolved]
  - Product quality issue [Unknown]
  - Overdose [Recovered/Resolved]
  - Altered state of consciousness [Recovered/Resolved]
